FAERS Safety Report 15187239 (Version 1)
Quarter: 2018Q3

REPORT INFORMATION
  Report Type: Report from Study
  Country: US (occurrence: US)
  Receive Date: 20180723
  Receipt Date: 20180723
  Transmission Date: 20181010
  Serious: Yes (Hospitalization)
  Sender: FDA-Public Use
  Company Number: US-EXELIXIS-CABO-18013855

PATIENT
  Age: 51 Year
  Sex: Male

DRUGS (2)
  1. OXYCODONE [Suspect]
     Active Substance: OXYCODONE
  2. CABOMETYX [Suspect]
     Active Substance: CABOZANTINIB S-MALATE
     Indication: PRODUCT USED FOR UNKNOWN INDICATION
     Dosage: UNK
     Route: 048

REACTIONS (5)
  - Constipation [Unknown]
  - Pain in extremity [Unknown]
  - Abdominal pain upper [Unknown]
  - Vomiting [Unknown]
  - Dry skin [Unknown]

NARRATIVE: CASE EVENT DATE: 201803
